FAERS Safety Report 15192934 (Version 1)
Quarter: 2018Q3

REPORT INFORMATION
  Report Type: Spontaneous
  Country: QA (occurrence: QA)
  Receive Date: 20180725
  Receipt Date: 20180725
  Transmission Date: 20181010
  Serious: Yes (Other)
  Sender: FDA-Public Use
  Company Number: QA-AUROBINDO-AUR-APL-2018-036215

PATIENT
  Sex: Female

DRUGS (1)
  1. PIPERACILLIN AND TAZOBACTAM [Suspect]
     Active Substance: PIPERACILLIN SODIUM\TAZOBACTAM SODIUM
     Indication: URINARY TRACT INFECTION PSEUDOMONAL
     Dosage: ()
     Route: 065

REACTIONS (6)
  - Pyrexia [Recovered/Resolved]
  - Thrombocytopenia [Recovered/Resolved]
  - Leukopenia [Recovered/Resolved]
  - Maternal exposure during pregnancy [Unknown]
  - Neutropenia [Recovered/Resolved]
  - Bone marrow failure [Recovered/Resolved]
